FAERS Safety Report 4602411-8 (Version None)
Quarter: 2005Q1

REPORT INFORMATION
  Report Type: 
  Country: None (occurrence: None)
  Receive Date: 20050307
  Receipt Date: 20050209
  Transmission Date: 20050727
  Serious: Yes (Hospitalization, Other)
  Sender: FDA-Public Use
  Company Number: 2005002523

PATIENT
  Sex: Female

DRUGS (1)
  1. CELEBREX [Suspect]
     Indication: OSTEOARTHRITIS
     Dosage: 200 MG (1 IN 1 D)

REACTIONS (7)
  - ANXIETY [None]
  - BACTERIAL INFECTION [None]
  - DRUG INEFFECTIVE [None]
  - DUODENAL ULCER PERFORATION [None]
  - PAIN [None]
  - PERITONITIS [None]
  - WOUND INFECTION [None]
